FAERS Safety Report 6088160-0 (Version None)
Quarter: 2009Q1

REPORT INFORMATION
  Report Type: 
  Country: None (occurrence: None)
  Receive Date: 20090224
  Receipt Date: 20090219
  Transmission Date: 20090719
  Serious: Yes (Death, Hospitalization)
  Sender: FDA-Public Use
  Company Number: PHHY2008GB24666

PATIENT
  Sex: Male

DRUGS (12)
  1. CLOZARIL [Suspect]
     Indication: SCHIZOPHRENIA
     Dosage: UNK
     Dates: start: 20000104
  2. LITHIUM [Concomitant]
     Indication: PSYCHOTIC DISORDER
     Dosage: 600 MG
     Route: 048
  3. LANSOPRAZOLE [Concomitant]
     Indication: PANCREATITIS CHRONIC
     Dosage: 30 MG/DAY
     Route: 048
     Dates: start: 20040123, end: 20060201
  4. CREON [Concomitant]
     Dosage: 10000 UNITS
     Route: 048
  5. HYOSCINE [Concomitant]
     Indication: SALIVARY HYPERSECRETION
     Dosage: 300 MCG
     Route: 048
  6. HYDROXOCOBALAMIN [Concomitant]
     Indication: VITAMIN B COMPLEX DEFICIENCY
     Dosage: UNK
     Dates: start: 20070919
  7. LOPERAMIDE HCL [Concomitant]
     Indication: PANCREATITIS CHRONIC
     Dosage: 2 MG, QD
     Dates: start: 20040112, end: 20061121
  8. LOPERAMIDE HCL [Concomitant]
     Dosage: 2 MG, TID
     Dates: start: 20061128, end: 20070717
  9. LOPERAMIDE HCL [Concomitant]
     Dosage: 2 MG, 1-2 CAPSULES TDS
     Dates: start: 20070919
  10. CO-PHENOTROPE [Concomitant]
     Dosage: 2.5 MG + 25 MICROGRAMS, 1 UP TO QDS
     Dates: start: 20080108
  11. FERROUS SULFATE TAB [Concomitant]
     Dosage: 200 MG, TID
     Dates: start: 20070824
  12. SALBUTAMOL [Concomitant]
     Indication: LOWER RESPIRATORY TRACT INFECTION
     Dosage: 100 MICROGRAMS/INHALATION, 2 DOSES QDS
     Dates: start: 20061009

REACTIONS (5)
  - COUGH [None]
  - DEATH [None]
  - FATIGUE [None]
  - LOWER RESPIRATORY TRACT INFECTION [None]
  - WEIGHT DECREASED [None]
